FAERS Safety Report 9979979 (Version 1)
Quarter: 2014Q1

REPORT INFORMATION
  Report Type: Report from Study
  Country: US (occurrence: US)
  Receive Date: 20140307
  Receipt Date: 20140307
  Transmission Date: 20141002
  Serious: No
  Sender: FDA-Public Use
  Company Number: US-ABBVIE-13P-163-1175224-00

PATIENT
  Sex: Male
  Weight: 117.59 kg

DRUGS (3)
  1. HUMIRA [Suspect]
     Indication: CROHN^S DISEASE
     Dates: start: 2007, end: 2010
  2. HUMIRA [Suspect]
     Route: 058
     Dates: start: 20131122, end: 20131122
  3. PENTASA [Concomitant]
     Indication: CROHN^S DISEASE

REACTIONS (7)
  - Drug ineffective [Not Recovered/Not Resolved]
  - Drug specific antibody present [Unknown]
  - Abdominal pain [Unknown]
  - Nausea [Not Recovered/Not Resolved]
  - Decreased appetite [Unknown]
  - Injection site pain [Unknown]
  - Wrong technique in drug usage process [Unknown]
